FAERS Safety Report 11844983 (Version 1)
Quarter: 2015Q4

REPORT INFORMATION
  Report Type: Spontaneous
  Country: ES (occurrence: ES)
  Receive Date: 20151217
  Receipt Date: 20151217
  Transmission Date: 20160305
  Serious: Yes (Hospitalization, Disabling, Other)
  Sender: FDA-Public Use
  Company Number: ES-JNJFOC-20151213632

PATIENT
  Age: 85 Year
  Sex: Female

DRUGS (4)
  1. SIMVASTATINE [Concomitant]
     Active Substance: SIMVASTATIN
     Route: 065
  2. XARELTO [Suspect]
     Active Substance: RIVAROXABAN
     Indication: THROMBOSIS PROPHYLAXIS
     Route: 048
  3. XARELTO [Suspect]
     Active Substance: RIVAROXABAN
     Indication: KNEE ARTHROPLASTY
     Route: 048
  4. ADIRO [Concomitant]
     Active Substance: ASPIRIN
     Route: 065

REACTIONS (6)
  - Monoplegia [Not Recovered/Not Resolved]
  - Bone marrow ischaemia [Unknown]
  - Wound infection [Unknown]
  - Urinary retention [Not Recovered/Not Resolved]
  - Paresis anal sphincter [Not Recovered/Not Resolved]
  - Epidural anaesthesia [Unknown]

NARRATIVE: CASE EVENT DATE: 20151016
